FAERS Safety Report 23420040 (Version 1)
Quarter: 2024Q1

REPORT INFORMATION
  Report Type: Report from Study
  Country: JP (occurrence: JP)
  Receive Date: 20240119
  Receipt Date: 20240119
  Transmission Date: 20240410
  Serious: Yes (Hospitalization)
  Sender: FDA-Public Use
  Company Number: JP-GSK-JP2022JPN179500

PATIENT

DRUGS (37)
  1. BELIMUMAB [Suspect]
     Active Substance: BELIMUMAB
     Indication: Systemic lupus erythematosus
     Dosage: 10 MG/KG
     Route: 041
     Dates: start: 20210830, end: 20210830
  2. BELIMUMAB [Suspect]
     Active Substance: BELIMUMAB
     Indication: Lupus nephritis
     Dosage: 10 MG/KG
     Route: 041
     Dates: start: 20210913, end: 20210913
  3. BELIMUMAB [Suspect]
     Active Substance: BELIMUMAB
     Dosage: 10 MG/KG
     Route: 041
     Dates: start: 20210927, end: 20210927
  4. BELIMUMAB [Suspect]
     Active Substance: BELIMUMAB
     Dosage: 10 MG/KG
     Route: 041
     Dates: start: 20211021, end: 20211021
  5. BELIMUMAB [Suspect]
     Active Substance: BELIMUMAB
     Dosage: 10 MG/KG
     Route: 041
     Dates: start: 20211116, end: 20211116
  6. BELIMUMAB [Suspect]
     Active Substance: BELIMUMAB
     Dosage: 10 MG/KG
     Route: 041
     Dates: start: 20211214, end: 20211214
  7. BELIMUMAB [Suspect]
     Active Substance: BELIMUMAB
     Dosage: 10 MG/KG
     Route: 041
     Dates: start: 20220112, end: 20220112
  8. BELIMUMAB [Suspect]
     Active Substance: BELIMUMAB
     Dosage: 10 MG/KG
     Route: 041
     Dates: start: 20220216, end: 20220216
  9. BELIMUMAB [Suspect]
     Active Substance: BELIMUMAB
     Dosage: 10 MG/KG
     Route: 041
     Dates: start: 20220314, end: 20220314
  10. BELIMUMAB [Suspect]
     Active Substance: BELIMUMAB
     Dosage: 10 MG/KG
     Route: 041
     Dates: start: 20220411, end: 20220411
  11. BELIMUMAB [Suspect]
     Active Substance: BELIMUMAB
     Dosage: 10 MG/KG
     Route: 041
     Dates: start: 20220509, end: 20220509
  12. BELIMUMAB [Suspect]
     Active Substance: BELIMUMAB
     Dosage: 10 MG/KG
     Route: 041
     Dates: start: 20220606, end: 20220606
  13. BELIMUMAB [Suspect]
     Active Substance: BELIMUMAB
     Dosage: 10 MG/KG
     Route: 041
     Dates: start: 20220705, end: 20220705
  14. BELIMUMAB [Suspect]
     Active Substance: BELIMUMAB
     Dosage: 10 MG/KG
     Route: 041
     Dates: start: 20220808, end: 20220808
  15. PREDONINE [Suspect]
     Active Substance: PREDNISOLONE
     Indication: Systemic lupus erythematosus
     Dosage: 50 MG, QD
     Route: 048
     Dates: end: 20210915
  16. PREDONINE [Suspect]
     Active Substance: PREDNISOLONE
     Indication: Lupus nephritis
     Dosage: 45 MG, QD
     Route: 048
     Dates: start: 20210916, end: 20210922
  17. PREDONINE [Suspect]
     Active Substance: PREDNISOLONE
     Dosage: 40 MG, QD
     Route: 048
     Dates: start: 20210923, end: 20210929
  18. PREDONINE [Suspect]
     Active Substance: PREDNISOLONE
     Dosage: 35 MG, QD
     Route: 048
     Dates: start: 20210930, end: 20211007
  19. PREDONINE [Suspect]
     Active Substance: PREDNISOLONE
     Dosage: 30 MG, QD
     Route: 048
     Dates: start: 20211008, end: 20211014
  20. PREDONINE [Suspect]
     Active Substance: PREDNISOLONE
     Dosage: 25 MG, QD
     Route: 048
     Dates: start: 20211015, end: 20220112
  21. PREDONINE [Suspect]
     Active Substance: PREDNISOLONE
     Dosage: 23 MG, QD
     Route: 048
     Dates: start: 20220113, end: 20220216
  22. PREDONINE [Suspect]
     Active Substance: PREDNISOLONE
     Dosage: 21 MG, QD
     Route: 048
     Dates: start: 20220217, end: 20220314
  23. PREDONINE [Suspect]
     Active Substance: PREDNISOLONE
     Dosage: 19 MG, QD
     Route: 048
     Dates: start: 20220315, end: 20220411
  24. PREDONINE [Suspect]
     Active Substance: PREDNISOLONE
     Dosage: 17 MG, QD
     Route: 048
     Dates: start: 20220412, end: 20220509
  25. PREDONINE [Suspect]
     Active Substance: PREDNISOLONE
     Dosage: 15 MG, QD
     Route: 048
     Dates: start: 20220510, end: 20220705
  26. PREDONINE [Suspect]
     Active Substance: PREDNISOLONE
     Dosage: 13 MG, QD
     Route: 048
     Dates: start: 20220706, end: 20220808
  27. PREDONINE [Suspect]
     Active Substance: PREDNISOLONE
     Dosage: 12 MG, QD
     Route: 048
     Dates: start: 20220809
  28. CELLCEPT [Suspect]
     Active Substance: MYCOPHENOLATE MOFETIL
     Indication: Systemic lupus erythematosus
     Dosage: UNK
  29. CELLCEPT [Suspect]
     Active Substance: MYCOPHENOLATE MOFETIL
     Indication: Lupus nephritis
  30. AMLODIPINE [Concomitant]
     Active Substance: AMLODIPINE BESYLATE
     Dosage: UNK
  31. PLAQUENIL [Concomitant]
     Active Substance: HYDROXYCHLOROQUINE SULFATE
     Indication: Systemic lupus erythematosus
     Dosage: UNK
  32. PLAQUENIL [Concomitant]
     Active Substance: HYDROXYCHLOROQUINE SULFATE
     Indication: Lupus nephritis
  33. MOVICOL [Concomitant]
     Active Substance: POLYETHYLENE GLYCOL 3350\POTASSIUM CHLORIDE\SODIUM BICARBONATE\SODIUM CHLORIDE
     Dosage: UNK
  34. FAMOTIDINE [Concomitant]
     Active Substance: FAMOTIDINE
     Indication: Prophylaxis against gastrointestinal ulcer
     Dosage: UNK
  35. FUROSEMIDE [Concomitant]
     Active Substance: FUROSEMIDE
     Dosage: UNK
  36. SODIUM PICOSULFATE [Concomitant]
     Active Substance: SODIUM PICOSULFATE
     Dosage: UNK
  37. HIZENTRA [Concomitant]
     Active Substance: HUMAN IMMUNOGLOBULIN G
     Dosage: UNK

REACTIONS (3)
  - COVID-19 [Recovered/Resolved]
  - Upper respiratory tract inflammation [Recovered/Resolved]
  - Bronchitis [Recovering/Resolving]

NARRATIVE: CASE EVENT DATE: 20211214
